FAERS Safety Report 6956824-X (Version None)
Quarter: 2010Q3

REPORT INFORMATION
  Report Type: 
  Country: None (occurrence: None)
  Receive Date: 20100826
  Receipt Date: 20100811
  Transmission Date: 20110219
  Serious: Yes (Hospitalization)
  Sender: FDA-Public Use
  Company Number: LOC-00731

PATIENT
  Age: 5 Month
  Sex: Male

DRUGS (2)
  1. HYDROCORTISONE BUTYRATE [Suspect]
     Indication: DERMATITIS ATOPIC
     Route: 061
     Dates: start: 20100701, end: 20100707
  2. DESONIDE [Suspect]
     Indication: DERMATITIS ATOPIC
     Route: 061
     Dates: start: 20100701, end: 20100707

REACTIONS (7)
  - BLOOD IMMUNOGLOBULIN E INCREASED [None]
  - DISEASE RECURRENCE [None]
  - EOSINOPHILIA [None]
  - HERPES SIMPLEX [None]
  - LYMPHOCYTE COUNT INCREASED [None]
  - WHITE BLOOD CELL COUNT DECREASED [None]
  - WHITE BLOOD CELL COUNT INCREASED [None]
